FAERS Safety Report 10169986 (Version 1)
Quarter: 2014Q2

REPORT INFORMATION
  Report Type: Spontaneous
  Country: FR (occurrence: FR)
  Receive Date: 20140513
  Receipt Date: 20140513
  Transmission Date: 20141212
  Serious: Yes (Death, Hospitalization)
  Sender: FDA-Public Use
  Company Number: FR-BRISTOL-MYERS SQUIBB COMPANY-20702189

PATIENT
  Age: 84 Year
  Sex: Female

DRUGS (9)
  1. HYDREA [Suspect]
     Indication: ESSENTIAL THROMBOCYTHAEMIA
     Route: 048
     Dates: end: 20140122
  2. XAGRID [Suspect]
     Indication: ESSENTIAL THROMBOCYTHAEMIA
     Route: 048
     Dates: start: 20130703, end: 20131011
  3. NEORECORMON [Suspect]
     Indication: RENAL FAILURE CHRONIC
     Route: 048
     Dates: start: 20130703, end: 20140122
  4. NEORECORMON [Suspect]
     Indication: ANAEMIA
     Route: 048
     Dates: start: 20130703, end: 20140122
  5. SOLUPRED [Suspect]
     Indication: RHEUMATOID ARTHRITIS
     Dosage: LAST DOSE ON 07FEB14.
     Route: 048
  6. KARDEGIC [Suspect]
     Dosage: LAST DOSE ON 07FEB14.
     Route: 048
  7. PRIMPERAN [Suspect]
  8. MONO-TILDIEM LP [Suspect]
  9. IMOVANE [Suspect]
     Dosage: LAST DOSE ON 07FEB14.
     Route: 048

REACTIONS (1)
  - Interstitial lung disease [Fatal]
